FAERS Safety Report 16346901 (Version 1)
Quarter: 2019Q2

REPORT INFORMATION
  Report Type: Spontaneous
  Country: US (occurrence: US)
  Receive Date: 20190523
  Receipt Date: 20190523
  Transmission Date: 20190711
  Serious: Yes (Other)
  Sender: FDA-Public Use
  Company Number: US-PORTOLA PHARMACEUTICALS, INC.-2019US000039

PATIENT

DRUGS (1)
  1. ANDEXXA [Suspect]
     Active Substance: ANDEXANET ALFA
     Indication: PROCOAGULANT THERAPY
     Dosage: UNK
     Dates: start: 201905, end: 201905

REACTIONS (3)
  - Cardiogenic shock [Unknown]
  - Myocardial infarction [Unknown]
  - Ischaemic hepatitis [Unknown]

NARRATIVE: CASE EVENT DATE: 201905
